FAERS Safety Report 5728195-8 (Version None)
Quarter: 2008Q2

REPORT INFORMATION
  Report Type: 
  Country: None (occurrence: None)
  Receive Date: 20080501
  Receipt Date: 20080424
  Transmission Date: 20081010
  Serious: Yes (Hospitalization)
  Sender: FDA-Public Use
  Company Number: 0700001

PATIENT
  Age: 53 Year
  Sex: Male
  Weight: 39.9165 kg

DRUGS (8)
  1. CAP VORINOSTAT UNK [Suspect]
     Indication: NEOPLASM MALIGNANT
     Dosage: 800 MG/1X/PO
     Route: 048
     Dates: start: 20070726, end: 20070726
  2. CAP PLACEBO (UNSPECIFIED) UNK [Suspect]
     Indication: NEOPLASM MALIGNANT
     Dosage: 1X/PO
     Route: 048
     Dates: start: 20070718, end: 20070718
  3. CENTRUM [Concomitant]
  4. OXYCONTIN [Concomitant]
  5. PREVACID [Concomitant]
  6. PROVENTIL [Concomitant]
  7. OXYCODONE HCL [Concomitant]
  8. PREDNISONE TAB [Concomitant]

REACTIONS (3)
  - CELLULITIS [None]
  - METASTASES TO LYMPH NODES [None]
  - RESPIRATORY DISTRESS [None]
